FAERS Safety Report 10749321 (Version 3)
Quarter: 2015Q1

REPORT INFORMATION
  Report Type: Spontaneous
  Country: US (occurrence: US)
  Receive Date: 20150129
  Receipt Date: 20150310
  Transmission Date: 20150721
  Serious: Yes (Other)
  Sender: FDA-Public Use
  Company Number: US-GILEAD-2015-0133831

PATIENT
  Age: 55 Year
  Sex: Male
  Weight: 92 kg

DRUGS (5)
  1. SOFOSBUVIR [Suspect]
     Active Substance: SOFOSBUVIR
     Indication: CHRONIC HEPATITIS C
     Dosage: 5 DF, QD
     Route: 065
     Dates: start: 20150109, end: 20150114
  2. WELLBUTRIN [Concomitant]
     Active Substance: BUPROPION HYDROCHLORIDE
     Dosage: 150 MG, BID
     Route: 048
  3. RIBAVIRIN. [Concomitant]
     Active Substance: RIBAVIRIN
     Indication: CHRONIC HEPATITIS C
     Dosage: 1 DF, QD
     Route: 065
     Dates: start: 20150118
  4. CYMBALTA [Concomitant]
     Active Substance: DULOXETINE HYDROCHLORIDE
     Dosage: 20 MG, BID
     Route: 048
  5. SOFOSBUVIR [Suspect]
     Active Substance: SOFOSBUVIR
     Dosage: UNK
     Route: 065
     Dates: start: 20150108, end: 20150108

REACTIONS (13)
  - Appetite disorder [Unknown]
  - Urine flow decreased [Unknown]
  - Hepatitis C virus test positive [Unknown]
  - Arthralgia [Unknown]
  - Fatigue [Unknown]
  - Headache [Unknown]
  - Overdose [Recovered/Resolved]
  - Memory impairment [Unknown]
  - Depression [Unknown]
  - Hypersomnia [Unknown]
  - Myalgia [Unknown]
  - Treatment noncompliance [Unknown]
  - Confusional state [Unknown]

NARRATIVE: CASE EVENT DATE: 20150109
